FAERS Safety Report 5087836-1 (Version None)
Quarter: 2006Q3

REPORT INFORMATION
  Report Type: 
  Country: None (occurrence: None)
  Receive Date: 20060821
  Receipt Date: 20060821
  Transmission Date: 20061208
  Serious: Yes (Other)
  Sender: FDA-Public Use
  Company Number: None

PATIENT
  Sex: Female

DRUGS (1)
  1. VERAPAMIL [Suspect]
     Dosage: 1 TABLET  TID PO
     Route: 048
     Dates: start: 20060522, end: 20060703

REACTIONS (1)
  - CONTUSION [None]
